FAERS Safety Report 8748329 (Version 2)
Quarter: 2013Q2

REPORT INFORMATION
  Report Type: Spontaneous
  Country: IT (occurrence: IT)
  Receive Date: 20120827
  Receipt Date: 20130522
  Transmission Date: 20140414
  Serious: Yes (Hospitalization)
  Sender: FDA-Public Use
  Company Number: IT-MYLANLABS-2012S1017082

PATIENT
  Age: 40 Year
  Sex: Female

DRUGS (8)
  1. ARIPIPRAZOLE [Suspect]
     Dosage: 5 MG/DAY
     Route: 065
  2. CHLORPROMAZINE [Suspect]
     Dosage: 100 MG/DAY
     Route: 065
  3. PROMAZINE [Suspect]
     Dosage: 100MG
     Route: 030
  4. OLANZAPINE [Suspect]
     Dosage: 10MG
     Route: 048
  5. BUPROPION [Concomitant]
     Dosage: 150 MG/DAY
     Route: 065
  6. CLOMIPRAMINE [Concomitant]
     Dosage: 75 MG/DAY
     Route: 065
  7. DIAZEPAM [Concomitant]
     Dosage: 10MG
     Route: 030
  8. DIAZEPAM [Concomitant]
     Dosage: 10MG
     Route: 042

REACTIONS (2)
  - Neuroleptic malignant syndrome [Recovered/Resolved]
  - Catatonia [Recovered/Resolved]
